FAERS Safety Report 7778109-4 (Version None)
Quarter: 2011Q3

REPORT INFORMATION
  Report Type: 
  Country: None (occurrence: None)
  Receive Date: 20110926
  Receipt Date: 20110921
  Transmission Date: 20111222
  Serious: Yes (Death, Other)
  Sender: FDA-Public Use
  Company Number: TN-SANOFI-AVENTIS-2011SA062080

PATIENT
  Age: 69 Year
  Sex: Female

DRUGS (8)
  1. PLAVIX [Suspect]
     Indication: STENT PLACEMENT
     Dates: start: 20101225, end: 20110603
  2. ASPIRIN [Concomitant]
     Route: 048
     Dates: end: 20110603
  3. PLAVIX [Suspect]
     Indication: ACUTE CORONARY SYNDROME
     Dates: start: 20101225, end: 20110603
  4. INSULATARD NPH HUMAN [Concomitant]
     Route: 058
     Dates: end: 20110603
  5. HYPOTEN [Concomitant]
     Route: 048
     Dates: end: 20110603
  6. CAPTOPRIL [Concomitant]
     Route: 048
     Dates: end: 20110603
  7. CRESTOR [Concomitant]
     Route: 048
     Dates: end: 20110603
  8. CORVASAL [Concomitant]
     Route: 048
     Dates: end: 20110603

REACTIONS (3)
  - ISCHAEMIC STROKE [None]
  - HYPOGLYCAEMIA [None]
  - COMA [None]
